FAERS Safety Report 20127451 (Version 1)
Quarter: 2021Q4

REPORT INFORMATION
  Report Type: Spontaneous
  Country: RO (occurrence: RO)
  Receive Date: 20211129
  Receipt Date: 20211129
  Transmission Date: 20220303
  Serious: Yes (Hospitalization, Other)
  Sender: FDA-Public Use
  Company Number: RO-ELI_LILLY_AND_COMPANY-RO202109011400

PATIENT
  Age: 74 Year
  Sex: Female

DRUGS (1)
  1. LETROZOLE [Suspect]
     Active Substance: LETROZOLE
     Indication: Breast cancer metastatic
     Dosage: UNK UNK, UNKNOWN
     Route: 065

REACTIONS (14)
  - Neutropenia [Unknown]
  - Renal impairment [Recovering/Resolving]
  - Hyponatraemia [Recovering/Resolving]
  - Decreased appetite [Recovering/Resolving]
  - Vomiting [Recovering/Resolving]
  - Achlorhydria [Recovering/Resolving]
  - Hypokalaemia [Recovering/Resolving]
  - Leukopenia [Unknown]
  - Diarrhoea [Recovering/Resolving]
  - Dehydration [Recovering/Resolving]
  - Asthenia [Recovering/Resolving]
  - Anaemia [Recovered/Resolved]
  - Hypocalcaemia [Recovering/Resolving]
  - Nausea [Recovering/Resolving]
